FAERS Safety Report 10689947 (Version 4)
Quarter: 2015Q3

REPORT INFORMATION
  Report Type: Spontaneous
  Country: US (occurrence: US)
  Receive Date: 20150105
  Receipt Date: 20150807
  Transmission Date: 20151125
  Serious: No
  Sender: FDA-Public Use
  Company Number: US-JNJFOC-20141216411

PATIENT
  Sex: Male

DRUGS (2)
  1. RISPERDAL CONSTA [Suspect]
     Active Substance: RISPERIDONE
     Indication: PRODUCT USED FOR UNKNOWN INDICATION
     Route: 030
  2. RISPERDAL M-TAB [Suspect]
     Active Substance: RISPERIDONE
     Indication: PSYCHOTIC DISORDER
     Route: 048

REACTIONS (10)
  - Galactorrhoea [Unknown]
  - Nausea [Recovered/Resolved]
  - Headache [Unknown]
  - Emotional disorder [Unknown]
  - Gynaecomastia [Unknown]
  - Drooling [Unknown]
  - Diarrhoea [Unknown]
  - Hyperprolactinaemia [Unknown]
  - Malaise [Unknown]
  - Obesity [Unknown]
